FAERS Safety Report 15219121 (Version 1)
Quarter: 2018Q3

REPORT INFORMATION
  Report Type: Spontaneous
  Country: FR (occurrence: FR)
  Receive Date: 20180731
  Receipt Date: 20180731
  Transmission Date: 20181010
  Serious: Yes (Other)
  Sender: FDA-Public Use
  Company Number: FR-MERCK KGAA-2052969

PATIENT
  Age: 53 Year
  Sex: Female
  Weight: 61 kg

DRUGS (1)
  1. NOVOTHYROX [Suspect]
     Active Substance: LEVOTHYROXINE SODIUM
     Indication: HYPOTHYROIDISM
     Route: 048
     Dates: start: 20170920, end: 20180321

REACTIONS (5)
  - Tremor [Unknown]
  - Depression [Unknown]
  - Vertigo [Unknown]
  - International normalised ratio increased [Unknown]
  - Constipation [Unknown]

NARRATIVE: CASE EVENT DATE: 201710
